FAERS Safety Report 4986576-4 (Version None)
Quarter: 2006Q2

REPORT INFORMATION
  Report Type: 
  Country: None (occurrence: None)
  Receive Date: 20060428
  Receipt Date: 20051215
  Transmission Date: 20061013
  Serious: No
  Sender: FDA-Public Use
  Company Number: US-GLAXOSMITHKLINE-A0585976A

PATIENT
  Age: 58 Year
  Sex: Female

DRUGS (11)
  1. VENTOLIN [Suspect]
     Indication: ASTHMA
     Dosage: 2PUFF AS REQUIRED
     Route: 055
     Dates: start: 20020101
  2. FLOVENT [Concomitant]
  3. FLONASE [Concomitant]
  4. ATROVENT [Concomitant]
  5. PREMARIN [Concomitant]
  6. ALBUTEROL [Concomitant]
  7. HYDROCHLOROTHIAZIDE [Concomitant]
  8. POTASSIUM [Concomitant]
  9. IPRATROPIUM BR [Concomitant]
  10. CROMOLYN SODIUM [Concomitant]
  11. OXYGEN [Concomitant]

REACTIONS (1)
  - DRUG INEFFECTIVE [None]
